FAERS Safety Report 6507330-8 (Version None)
Quarter: 2009Q4

REPORT INFORMATION
  Report Type: 
  Country: None (occurrence: None)
  Receive Date: 20091221
  Receipt Date: 20091211
  Transmission Date: 20100525
  Serious: Yes (Death, Hospitalization)
  Sender: FDA-Public Use
  Company Number: JP-NOVOPROD-300007

PATIENT
  Sex: Male
  Weight: 57 kg

DRUGS (1)
  1. LEVEMIR [Suspect]
     Indication: TYPE 2 DIABETES MELLITUS
     Dosage: 10 IU, QD
     Route: 058
     Dates: start: 20090122, end: 20090810

REACTIONS (3)
  - CONDITION AGGRAVATED [None]
  - INFECTION [None]
  - INTERSTITIAL LUNG DISEASE [None]
